FAERS Safety Report 4885050-3 (Version None)
Quarter: 2006Q1

REPORT INFORMATION
  Report Type: 
  Country: None (occurrence: None)
  Receive Date: 20060119
  Receipt Date: 20051010
  Transmission Date: 20060701
  Serious: Yes (Hospitalization)
  Sender: FDA-Public Use
  Company Number: US-MERCK-0510USA06480

PATIENT
  Age: 76 Year
  Sex: Female
  Weight: 91 kg

DRUGS (21)
  1. VIOXX [Suspect]
     Route: 048
  2. METOPROLOL [Concomitant]
     Route: 065
  3. AMBIEN [Concomitant]
     Route: 065
  4. AMARYL [Concomitant]
     Route: 065
  5. DICYCLOMINE HYDROCHLORIDE [Concomitant]
     Route: 065
  6. INSULIN [Concomitant]
     Route: 065
  7. NORVASC [Concomitant]
     Route: 065
  8. LIPITOR [Concomitant]
     Route: 065
  9. FUROSEMIDE [Concomitant]
     Route: 065
  10. ISOSORBIDE MONONITRATE [Concomitant]
     Route: 065
  11. DIOVAN [Concomitant]
     Route: 065
  12. PRILOSEC [Concomitant]
     Route: 048
  13. DOCUSATE SODIUM [Concomitant]
     Route: 065
  14. AVANDIA [Concomitant]
     Route: 065
  15. PENTOXIFYLLINE [Concomitant]
     Route: 065
  16. LEVAQUIN [Concomitant]
     Route: 065
  17. COZAAR [Concomitant]
     Route: 048
  18. NITRO-DUR [Concomitant]
     Route: 065
  19. TRAMADOL HYDROCHLORIDE [Concomitant]
     Route: 065
  20. NITROQUICK [Concomitant]
     Route: 065
  21. ALBUTEROL [Concomitant]
     Route: 065

REACTIONS (10)
  - AORTIC VALVE DISEASE [None]
  - AORTIC VALVE STENOSIS [None]
  - APPENDICITIS [None]
  - CARDIAC DISORDER [None]
  - CARDIAC FAILURE CONGESTIVE [None]
  - CHEST PAIN [None]
  - CORONARY ARTERY DISEASE [None]
  - DIABETES MELLITUS [None]
  - HYPERTENSION [None]
  - MYOCARDIAL INFARCTION [None]
